FAERS Safety Report 6540654-7 (Version None)
Quarter: 2010Q1

REPORT INFORMATION
  Report Type: 
  Country: None (occurrence: None)
  Receive Date: 20100118
  Receipt Date: 20100107
  Transmission Date: 20100710
  Serious: Yes (Hospitalization)
  Sender: FDA-Public Use
  Company Number: US-ELI_LILLY_AND_COMPANY-US200912002652

PATIENT
  Sex: Female

DRUGS (9)
  1. FORTEO [Suspect]
     Indication: OSTEOPOROSIS
     Dosage: 20 UG, DAILY (1/D)
     Dates: start: 20090901
  2. TRAMADOL [Concomitant]
     Dosage: 50 MG, UNK
  3. TYLENOL (CAPLET) [Concomitant]
     Dosage: UNK, 2/D
  4. VITAMIN D [Concomitant]
  5. CALCIUM [Concomitant]
  6. ZESTRIL [Concomitant]
     Dosage: 5 MG, UNK
  7. LIPITOR [Concomitant]
     Dosage: 10 MG, UNK
  8. TOPRAL [Concomitant]
     Dosage: 5 MG, UNK
  9. AMBIEN [Concomitant]
     Dosage: 12.5 MG, UNK

REACTIONS (2)
  - FALL [None]
  - PATELLA FRACTURE [None]
